FAERS Safety Report 7970210-5 (Version None)
Quarter: 2011Q4

REPORT INFORMATION
  Report Type: 
  Country: None (occurrence: None)
  Receive Date: 20111212
  Receipt Date: 20111205
  Transmission Date: 20120403
  Serious: Yes (Death, Life-Threatening, Hospitalization, Other)
  Sender: FDA-Public Use
  Company Number: GB-GENZYME-THYM-1002965

PATIENT
  Sex: Female

DRUGS (36)
  1. CALCIUM CHLORIDE DIHYDRATE [Concomitant]
     Indication: PRODUCT USED FOR UNKNOWN INDICATION
  2. PHOCYTAN [Concomitant]
     Indication: PRODUCT USED FOR UNKNOWN INDICATION
     Dosage: 20 ML, UNK
  3. MAGNESIUM SULFATE [Concomitant]
     Indication: PRODUCT USED FOR UNKNOWN INDICATION
  4. PLITICAN [Concomitant]
     Indication: NAUSEA
     Route: 042
  5. PANTOPRAZOLE SODIUM [Concomitant]
     Indication: PRODUCT USED FOR UNKNOWN INDICATION
     Dosage: 20 MG, QD
     Route: 042
  6. AMLODIPINE [Concomitant]
     Indication: PRODUCT USED FOR UNKNOWN INDICATION
     Dosage: 750 MG, UNK
     Route: 042
  7. ZOVIRAX [Concomitant]
     Indication: PRODUCT USED FOR UNKNOWN INDICATION
     Dosage: 750 MG, UNK
     Route: 042
  8. THYMOGLOBULIN [Suspect]
     Indication: ACUTE GRAFT VERSUS HOST DISEASE
     Dosage: 140 MG, QD
     Route: 042
     Dates: start: 20110301, end: 20110304
  9. CERNEVIT-12 [Concomitant]
     Indication: PRODUCT USED FOR UNKNOWN INDICATION
     Dosage: 1 FL, UNK
  10. SPASFON [Concomitant]
     Indication: ABDOMINAL PAIN
     Route: 042
  11. PHOCYTAN [Concomitant]
     Dosage: 60 ML, UNK
  12. DEXAMETHASONE SODIUM PHOSPHATE [Concomitant]
     Indication: PRODUCT USED FOR UNKNOWN INDICATION
     Dosage: 1 FL, UNK
  13. TIENAM [Concomitant]
     Indication: PRODUCT USED FOR UNKNOWN INDICATION
     Dosage: 3 G, UNK
     Route: 042
     Dates: start: 20110314
  14. NICARDIPINE HCL [Concomitant]
     Indication: PRODUCT USED FOR UNKNOWN INDICATION
     Dosage: UNK
     Route: 042
  15. ACUPAN [Concomitant]
     Indication: PAIN
     Dosage: 80 MG, QD
  16. STRUCTOKABIVEN [Concomitant]
     Indication: PRODUCT USED FOR UNKNOWN INDICATION
     Dosage: 1700 UNK, UNK
     Dates: start: 20110324
  17. AMIKACIN [Concomitant]
     Indication: PRODUCT USED FOR UNKNOWN INDICATION
  18. NOXAFIL [Concomitant]
     Indication: PRODUCT USED FOR UNKNOWN INDICATION
     Dosage: 800 MG, UNK
     Route: 042
  19. POTASSIUM ACETATE [Concomitant]
     Indication: PRODUCT USED FOR UNKNOWN INDICATION
     Dosage: 5 G, UNK
     Route: 042
  20. SOLU-MEDROL [Concomitant]
     Indication: PRODUCT USED FOR UNKNOWN INDICATION
     Dosage: 60 MG, QD
     Dates: start: 20110322
  21. SOLU-MEDROL [Concomitant]
     Dosage: 45 MG, QD
     Dates: start: 20110404
  22. ORAL BLOOD GLUCOSE LOWERING DRUGS [Concomitant]
     Indication: PRODUCT USED FOR UNKNOWN INDICATION
  23. PHYTONADIONE [Concomitant]
     Indication: PRODUCT USED FOR UNKNOWN INDICATION
     Dosage: 1 UNK, UNK
  24. GANCICLOVIR SODIUM [Concomitant]
     Indication: PRODUCT USED FOR UNKNOWN INDICATION
     Dosage: 500 MG, QD
     Dates: start: 20110322
  25. ACETAMINOPHEN [Concomitant]
     Indication: PYREXIA
     Dosage: 3 G, UNK
     Route: 048
  26. LUTENYL [Concomitant]
     Indication: PRODUCT USED FOR UNKNOWN INDICATION
     Route: 048
  27. PROBENECID [Concomitant]
     Indication: PRODUCT USED FOR UNKNOWN INDICATION
  28. VFEND [Concomitant]
     Indication: PRODUCT USED FOR UNKNOWN INDICATION
     Dosage: 400 MG, QD
     Route: 042
     Dates: start: 20110317
  29. ACTRAPID [Concomitant]
     Indication: PRODUCT USED FOR UNKNOWN INDICATION
  30. CLONAZEPAM [Concomitant]
     Indication: PRODUCT USED FOR UNKNOWN INDICATION
     Dosage: 1 MG, QD
     Route: 042
  31. VANCOCIN HYDROCHLORIDE [Concomitant]
     Indication: PRODUCT USED FOR UNKNOWN INDICATION
     Dosage: 1 G, UNK
     Route: 042
  32. SODIUM CHLORIDE [Concomitant]
     Indication: PRODUCT USED FOR UNKNOWN INDICATION
     Dosage: 1 L, Q1HR
  33. POTASSIUM ACETATE [Concomitant]
     Dosage: 8 G, UNK
     Route: 042
  34. VISTIDE [Concomitant]
     Indication: PRODUCT USED FOR UNKNOWN INDICATION
     Dosage: UNK
     Route: 042
     Dates: start: 20110325
  35. MORPHINE [Concomitant]
     Indication: PRODUCT USED FOR UNKNOWN INDICATION
     Dosage: 24 MG, Q1HR
     Route: 042
  36. ATARAX [Concomitant]
     Indication: INSOMNIA
     Dosage: 25 MG, UNK
     Route: 048

REACTIONS (10)
  - CYSTITIS HAEMORRHAGIC [None]
  - CARDIOVASCULAR DISORDER [None]
  - COAGULATION FACTOR V LEVEL DECREASED [None]
  - RESPIRATORY DISORDER [None]
  - ANAEMIA [None]
  - ADENOVIRAL HEPATITIS [None]
  - GENERAL PHYSICAL HEALTH DETERIORATION [None]
  - ENCEPHALITIS [None]
  - MULTI-ORGAN FAILURE [None]
  - HEPATIC FAILURE [None]
